FAERS Safety Report 23519721 (Version 2)
Quarter: 2024Q3

REPORT INFORMATION
  Report Type: Report from Study
  Country: JP (occurrence: JP)
  Receive Date: 20240213
  Receipt Date: 20240806
  Transmission Date: 20241017
  Serious: Yes (Hospitalization, Other)
  Sender: GLAXOSMITHKLINE
  Company Number: JP-GSK-JP2019JPN032697

PATIENT

DRUGS (46)
  1. MEPOLIZUMAB [Suspect]
     Active Substance: MEPOLIZUMAB
     Indication: Eosinophilic granulomatosis with polyangiitis
     Dosage: 300 MG
     Dates: start: 20190213, end: 20190213
  2. MEPOLIZUMAB [Suspect]
     Active Substance: MEPOLIZUMAB
     Dosage: 100 MG, Q8W
     Dates: start: 20190408, end: 20190408
  3. MEPOLIZUMAB [Suspect]
     Active Substance: MEPOLIZUMAB
     Dosage: 100 MG, Q4W
     Dates: start: 20190508, end: 20190508
  4. MEPOLIZUMAB [Suspect]
     Active Substance: MEPOLIZUMAB
     Dosage: 100 MG
     Dates: start: 20190708, end: 20190708
  5. MEPOLIZUMAB [Suspect]
     Active Substance: MEPOLIZUMAB
     Dosage: 200 MG, Q4W
     Dates: start: 20190805, end: 20190805
  6. MEPOLIZUMAB [Suspect]
     Active Substance: MEPOLIZUMAB
     Dosage: 300 MG, Q4W
     Dates: start: 20190902, end: 20200511
  7. MEPOLIZUMAB [Suspect]
     Active Substance: MEPOLIZUMAB
     Dosage: 300 MG
     Dates: start: 20200831, end: 20200831
  8. MEPOLIZUMAB [Suspect]
     Active Substance: MEPOLIZUMAB
     Dosage: 300 MG, Q4W
     Dates: start: 20200928, end: 20201027
  9. METHYLPREDNISOLONE [Suspect]
     Active Substance: METHYLPREDNISOLONE
     Indication: Eosinophilic granulomatosis with polyangiitis
     Dosage: 14 MG, QD
     Route: 048
     Dates: end: 20190220
  10. METHYLPREDNISOLONE [Suspect]
     Active Substance: METHYLPREDNISOLONE
     Dosage: 18 MG, QD
     Route: 048
     Dates: start: 20190221, end: 20190224
  11. METHYLPREDNISOLONE [Suspect]
     Active Substance: METHYLPREDNISOLONE
     Dosage: 16 MG, QD
     Route: 048
     Dates: start: 20190225, end: 20190407
  12. METHYLPREDNISOLONE [Suspect]
     Active Substance: METHYLPREDNISOLONE
     Dosage: 14 MG, QD
     Route: 048
     Dates: start: 20190408, end: 20190804
  13. METHYLPREDNISOLONE [Suspect]
     Active Substance: METHYLPREDNISOLONE
     Dosage: 13 MG, QD
     Route: 048
     Dates: start: 20190805, end: 20190818
  14. METHYLPREDNISOLONE [Suspect]
     Active Substance: METHYLPREDNISOLONE
     Dosage: 12 MG, QD
     Route: 048
     Dates: start: 20190819, end: 20190901
  15. METHYLPREDNISOLONE [Suspect]
     Active Substance: METHYLPREDNISOLONE
     Dosage: 10 MG, QD
     Route: 048
     Dates: start: 20190902, end: 20200401
  16. METHYLPREDNISOLONE [Suspect]
     Active Substance: METHYLPREDNISOLONE
     Dosage: 9 MG, QD
     Route: 048
     Dates: start: 20200402, end: 20200902
  17. METHYLPREDNISOLONE [Suspect]
     Active Substance: METHYLPREDNISOLONE
     Dosage: 7 MG, QD
     Route: 048
     Dates: start: 20200903, end: 20200916
  18. METHYLPREDNISOLONE [Suspect]
     Active Substance: METHYLPREDNISOLONE
     Dosage: 6 MG, QD
     Route: 048
     Dates: start: 20200917, end: 20200930
  19. METHYLPREDNISOLONE [Suspect]
     Active Substance: METHYLPREDNISOLONE
     Dosage: 5 MG, QD
     Route: 048
     Dates: start: 20201001, end: 20201014
  20. METHYLPREDNISOLONE [Suspect]
     Active Substance: METHYLPREDNISOLONE
     Dosage: 4 MG, QD
     Route: 048
     Dates: start: 20201015, end: 20201111
  21. METHYLPREDNISOLONE [Suspect]
     Active Substance: METHYLPREDNISOLONE
     Dosage: 3 MG, QD
     Route: 048
     Dates: start: 20201112
  22. Immunoglobulin [Concomitant]
     Indication: Eosinophilic granulomatosis with polyangiitis
     Dosage: 15000 MG, QD
     Dates: start: 20190624, end: 20190624
  23. Immunoglobulin [Concomitant]
     Indication: Hypogammaglobulinaemia
     Dosage: 30000 MG, QD
     Dates: start: 20190718, end: 20190724
  24. Immunoglobulin [Concomitant]
     Dosage: 15000 MG
     Dates: start: 20191125, end: 20201104
  25. ATOVAQUONE [Concomitant]
     Active Substance: ATOVAQUONE
     Indication: Antifungal prophylaxis
     Dosage: UNK
  26. MONTELUKAST [Concomitant]
     Active Substance: MONTELUKAST SODIUM
     Dosage: UNK
  27. FEBUXOSTAT [Concomitant]
     Active Substance: FEBUXOSTAT
     Dosage: UNK
  28. OLOPATADINE [Concomitant]
     Active Substance: OLOPATADINE
     Indication: Eosinophilic granulomatosis with polyangiitis
     Dosage: UNK
  29. ESOMEPRAZOLE [Concomitant]
     Active Substance: ESOMEPRAZOLE
     Indication: Prophylaxis against gastrointestinal ulcer
     Dosage: UNK
  30. MAGNESIUM OXIDE [Concomitant]
     Active Substance: MAGNESIUM OXIDE
     Dosage: UNK
  31. ALENDRONATE [Concomitant]
     Active Substance: ALENDRONATE SODIUM
     Indication: Osteoporosis prophylaxis
     Dosage: UNK
  32. OLMESARTAN [Concomitant]
     Active Substance: OLMESARTAN
     Dosage: UNK
  33. CALONAL [Concomitant]
     Active Substance: ACETAMINOPHEN
     Indication: Eosinophilic granulomatosis with polyangiitis
     Dosage: UNK
  34. SHAKUYAKUKANZOTO [Concomitant]
     Active Substance: HERBALS
     Indication: Muscle spasms
     Dosage: UNK
  35. PREGABALIN [Concomitant]
     Active Substance: PREGABALIN
     Indication: Eosinophilic granulomatosis with polyangiitis
     Dosage: UNK
  36. DULOXETINE [Concomitant]
     Active Substance: DULOXETINE
     Indication: Eosinophilic granulomatosis with polyangiitis
     Dosage: UNK
  37. RAMELTEON [Concomitant]
     Active Substance: RAMELTEON
     Indication: Insomnia
     Dosage: UNK
  38. TRAZODONE [Concomitant]
     Active Substance: TRAZODONE HYDROCHLORIDE
     Indication: Insomnia
     Dosage: UNK
  39. SUVOREXANT [Concomitant]
     Active Substance: SUVOREXANT
     Indication: Insomnia
     Dosage: UNK
  40. ALENDRONATE [Concomitant]
     Active Substance: ALENDRONATE SODIUM
     Indication: Osteoporosis prophylaxis
     Dosage: UNK
  41. SODIUM FERROUS CITRATE [Concomitant]
     Active Substance: SODIUM FERROUS CITRATE
     Dosage: UNK
  42. SPIRONOLACTONE [Concomitant]
     Active Substance: SPIRONOLACTONE
     Dosage: UNK
  43. POLAPREZINC [Concomitant]
     Active Substance: POLAPREZINC
     Indication: Zinc deficiency
     Dosage: UNK
  44. AMPHOTERICIN B [Concomitant]
     Active Substance: AMPHOTERICIN B
     Indication: Oral candidiasis
     Dosage: UNK
  45. TRAMADOL HYDROCHLORIDE [Concomitant]
     Active Substance: TRAMADOL HYDROCHLORIDE
     Indication: Osteoarthritis
     Dosage: UNK
  46. MIRTAZAPINE [Concomitant]
     Active Substance: MIRTAZAPINE
     Indication: Insomnia
     Dosage: UNK

REACTIONS (5)
  - Pneumonia [Recovered/Resolved]
  - Cellulitis [Recovered/Resolved]
  - Asthma [Recovered/Resolved]
  - Pyrexia [Not Recovered/Not Resolved]
  - Inappropriate schedule of product administration [Unknown]

NARRATIVE: CASE EVENT DATE: 20190201
